FAERS Safety Report 5874491-3 (Version None)
Quarter: 2008Q3

REPORT INFORMATION
  Report Type: 
  Country: None (occurrence: None)
  Receive Date: 20080909
  Receipt Date: 20080827
  Transmission Date: 20090109
  Serious: Yes (Hospitalization, Other)
  Sender: FDA-Public Use
  Company Number: PHHO2007DE12339

PATIENT
  Sex: Male

DRUGS (7)
  1. ERL 080A ERL+TAB [Suspect]
     Indication: RENAL TRANSPLANT
     Dosage: 2880MG /DAILY
     Route: 048
  2. ERL 080A ERL+TAB [Suspect]
     Dosage: 360 MG, BID
  3. ERL 080A ERL+TAB [Suspect]
     Dosage: 720 MG, BID
  4. ERL 080A ERL+TAB [Suspect]
     Dosage: 1800 MG, BID
     Dates: start: 20070717
  5. ERL 080A ERL+TAB [Suspect]
     Dosage: 720 MG, BID
     Dates: start: 20070718
  6. DECORTIN [Concomitant]
     Indication: RENAL TRANSPLANT
     Dosage: 75 MG / DAILY
     Route: 048
  7. DECORTIN [Concomitant]
     Dosage: 40MG / OID

REACTIONS (4)
  - CENTRAL VENOUS CATHETERISATION [None]
  - HALLUCINATION, VISUAL [None]
  - PNEUMOTHORAX [None]
  - THORACIC CAVITY DRAINAGE [None]
